FAERS Safety Report 5521518-4 (Version None)
Quarter: 2007Q4

REPORT INFORMATION
  Report Type: 
  Country: None (occurrence: None)
  Receive Date: 20071119
  Receipt Date: 20071119
  Transmission Date: 20080405
  Serious: Yes (Death)
  Sender: FDA-Public Use
  Company Number: None

PATIENT
  Age: 59 Year
  Sex: Male
  Weight: 60 kg

DRUGS (1)
  1. ENBREL [Suspect]
     Dosage: 25 MG TWICE WEEKLY SQ
     Route: 058
     Dates: start: 20070806, end: 20070820

REACTIONS (6)
  - DISEASE PROGRESSION [None]
  - EPISTAXIS [None]
  - MULTI-ORGAN FAILURE [None]
  - PYREXIA [None]
  - SEPTIC SHOCK [None]
  - THROMBOCYTOPENIA [None]
